FAERS Safety Report 7903725-6 (Version None)
Quarter: 2011Q4

REPORT INFORMATION
  Report Type: 
  Country: None (occurrence: None)
  Receive Date: 20111109
  Receipt Date: 20111104
  Transmission Date: 20120403
  Serious: Yes (Life-Threatening, Other)
  Sender: FDA-Public Use
  Company Number: DE-AMGEN-DEUCT2011057833

PATIENT
  Age: 59 Year
  Sex: Male

DRUGS (4)
  1. PANITUMUMAB [Suspect]
     Indication: GASTRIC CANCER
     Dosage: 9 MG/KG, UNK
     Route: 042
     Dates: start: 20110907
  2. CAPECITABINE [Concomitant]
     Indication: GASTRIC CANCER
     Dosage: 625 MG/M2, UNK
     Route: 048
     Dates: start: 20110907
  3. EPIRUBICIN [Concomitant]
     Indication: GASTRIC CANCER
     Dosage: UNK MG/M2, UNK
     Route: 042
     Dates: start: 20110908
  4. CISPLATIN [Concomitant]
     Indication: GASTRIC CANCER
     Dosage: UNK MG/M2, UNK
     Route: 042
     Dates: start: 20110908

REACTIONS (2)
  - NEUTROPENIA [None]
  - PYREXIA [None]
